FAERS Safety Report 17835902 (Version 1)
Quarter: 2020Q2

REPORT INFORMATION
  Report Type: Other
  Country: CA (occurrence: CA)
  Receive Date: 20200528
  Receipt Date: 20200528
  Transmission Date: 20200714
  Serious: Yes (Hospitalization, Other)
  Sender: FDA-Public Use
  Company Number: CA-APOTEX-2020AP011231

PATIENT
  Age: 9 Month
  Sex: Female

DRUGS (2)
  1. AMOXICILLIN/ CLAVULANIC ACID [Suspect]
     Active Substance: AMOXICILLIN\CLAVULANIC ACID
     Indication: ESCHERICHIA INFECTION
     Dosage: UNK
     Route: 065
  2. CEFTRIAXONE. [Suspect]
     Active Substance: CEFTRIAXONE
     Indication: ESCHERICHIA INFECTION
     Dosage: 640 MG, SINGLE (TOTAL)
     Route: 042

REACTIONS (5)
  - Coagulopathy [Unknown]
  - Activated partial thromboplastin time prolonged [Unknown]
  - Epistaxis [Unknown]
  - Haemorrhage [Unknown]
  - Prothrombin time prolonged [Unknown]
